FAERS Safety Report 9840966 (Version 1)
Quarter: 2014Q1

REPORT INFORMATION
  Report Type: Spontaneous
  Country: US (occurrence: None)
  Receive Date: 20140123
  Receipt Date: 20140123
  Transmission Date: 20141002
  Serious: Yes (Death)
  Sender: FDA-Public Use
  Company Number: None

PATIENT
  Age: 60 Year
  Sex: Female
  Weight: 100 kg

DRUGS (5)
  1. PROPOFOL [Suspect]
     Indication: INDUCTION OF ANAESTHESIA
     Route: 042
     Dates: start: 20120912
  2. DESFLURANE [Suspect]
     Indication: ANAESTHESIA PROCEDURE
     Route: 055
     Dates: start: 20120912
  3. PROGRAF [Concomitant]
  4. LANTUS INSULIN [Concomitant]
  5. HUMALOG INSULIN [Concomitant]

REACTIONS (5)
  - Hepatic enzyme increased [None]
  - Blood bilirubin increased [None]
  - Cholestasis [None]
  - Hepatic failure [None]
  - Drug ineffective [None]
